FAERS Safety Report 4405246-4 (Version None)
Quarter: 2004Q3

REPORT INFORMATION
  Report Type: 
  Country: None (occurrence: None)
  Receive Date: 20040723
  Receipt Date: 20040209
  Transmission Date: 20050211
  Serious: Yes (Other)
  Sender: FDA-Public Use
  Company Number: PHBS2004GB01977

PATIENT
  Age: 49 Year
  Sex: Male

DRUGS (2)
  1. ZOLEDRONIC ACID [Suspect]
     Indication: METASTASES TO BONE
     Dosage: 4 MG
     Route: 042
  2. DIAMORPHINE [Concomitant]
     Indication: BONE PAIN
     Route: 042

REACTIONS (8)
  - BLOOD MAGNESIUM DECREASED [None]
  - BLOOD PARATHYROID HORMONE INCREASED [None]
  - CONDITION AGGRAVATED [None]
  - ELECTROCARDIOGRAM QT PROLONGED [None]
  - HYPOCALCAEMIA [None]
  - MUSCLE SPASMS [None]
  - PARAESTHESIA [None]
  - VITAMIN D DECREASED [None]
